FAERS Safety Report 9644564 (Version 1)
Quarter: 2013Q4

REPORT INFORMATION
  Report Type: Report from Study
  Country: BR (occurrence: BR)
  Receive Date: 20131025
  Receipt Date: 20131025
  Transmission Date: 20140711
  Serious: Yes (Other)
  Sender: FDA-Public Use
  Company Number: BR-ROCHE-1293151

PATIENT
  Sex: Female
  Weight: 60 kg

DRUGS (2)
  1. XOLAIR [Suspect]
     Indication: ASTHMA
     Dosage: 2 AMPOULES, EACH 15 DAYS
     Route: 065
  2. ALENIA (BRAZIL) [Concomitant]

REACTIONS (11)
  - Blood pressure increased [Unknown]
  - Oral discomfort [Unknown]
  - Nervousness [Unknown]
  - Depression [Unknown]
  - Stress [Unknown]
  - Emotional disorder [Unknown]
  - Blood glucose increased [Unknown]
  - Crying [Unknown]
  - Blood triglycerides increased [Unknown]
  - Hypersensitivity [Unknown]
  - Fatigue [Unknown]
